FAERS Safety Report 23716495 (Version 1)
Quarter: 2024Q2

REPORT INFORMATION
  Report Type: Spontaneous
  Country: US (occurrence: US)
  Receive Date: 20240408
  Receipt Date: 20240408
  Transmission Date: 20240716
  Serious: No
  Sender: FDA-Public Use
  Company Number: US-TEVA-VS-3177319

PATIENT
  Age: 65 Year
  Sex: Female

DRUGS (1)
  1. LOVASTATIN [Suspect]
     Active Substance: LOVASTATIN
     Indication: Product used for unknown indication
     Route: 065

REACTIONS (1)
  - Pruritus [Unknown]
